FAERS Safety Report 7070396-3 (Version None)
Quarter: 2010Q4

REPORT INFORMATION
  Report Type: 
  Country: None (occurrence: None)
  Receive Date: 20101029
  Receipt Date: 20101021
  Transmission Date: 20110411
  Serious: Yes (Hospitalization, Other)
  Sender: FDA-Public Use
  Company Number: US-BIOGENIDEC-2010BI023418

PATIENT
  Sex: Female

DRUGS (3)
  1. AVONEX [Suspect]
     Indication: MULTIPLE SCLEROSIS
     Route: 030
     Dates: start: 20090201
  2. AVONEX [Suspect]
     Route: 030
     Dates: start: 20090201
  3. AVONEX [Suspect]
     Route: 030
     Dates: start: 19990709

REACTIONS (8)
  - ALCOHOL ABUSE [None]
  - ALCOHOLIC LIVER DISEASE [None]
  - CONVULSION [None]
  - HEPATIC CIRRHOSIS [None]
  - HERNIA [None]
  - MULTIPLE SCLEROSIS RELAPSE [None]
  - PANCREATITIS [None]
  - VOMITING [None]
